FAERS Safety Report 9594226 (Version 1)
Quarter: 2013Q3

REPORT INFORMATION
  Report Type: Spontaneous
  Country: US (occurrence: None)
  Receive Date: 20130923
  Receipt Date: 20130923
  Transmission Date: 20140515
  Serious: Yes (Hospitalization)
  Sender: FDA-Public Use
  Company Number: 2013STPI000254

PATIENT
  Age: 58 Year
  Sex: Female
  Weight: 100.2 kg

DRUGS (16)
  1. MATULANE [Suspect]
     Indication: LYMPHOMA
     Route: 048
  2. CYMBALTA (DULOXETINE HYDROCHLORIDE) [Concomitant]
  3. LASTACAFT EYE DROPS [Concomitant]
  4. LASIX (FUROSEMIDE) [Concomitant]
  5. PREDNISONE (PREDNISONE) [Concomitant]
  6. VICODIN (HYDROCODONE BITARTRATE, PARACETAMOL) [Concomitant]
  7. ZOFRAN (ONDANSETRON HYDROCHLORIDE) [Concomitant]
  8. GLIMEPIRIDE (GLIMEPIRIDE) [Concomitant]
  9. DIVALPROEX SODIUM (VALPROATE SEMISODIUM) [Concomitant]
  10. PHENERGAN (PROMETHAZINE HYDROCHLORIDE) [Concomitant]
  11. FERROUS SULFATE (FERROUS SULFATE) [Concomitant]
  12. XANAX (ALPRAZOLAM) [Concomitant]
  13. PRILOSEC (OMEPRAZOLE MAGNESIUM) [Concomitant]
  14. ASPIRIN (ACETYLSALICYLIC ACID) [Concomitant]
  15. OXYCONTIN (OXYCODONE HYDROCHLORIDE) [Concomitant]
  16. PROAIR HFA (SALBUTAMOL SULFATE) [Concomitant]

REACTIONS (1)
  - Sepsis [None]
